FAERS Safety Report 6107263-5 (Version None)
Quarter: 2009Q1

REPORT INFORMATION
  Report Type: 
  Country: None (occurrence: None)
  Receive Date: 20090309
  Receipt Date: 20090302
  Transmission Date: 20090719
  Serious: Yes (Other)
  Sender: FDA-Public Use
  Company Number: HU-BAYER-200915202GPV

PATIENT
  Age: 38 Year
  Sex: Female

DRUGS (1)
  1. MIRENA [Suspect]
     Indication: CONTRACEPTION
     Route: 015
     Dates: start: 20080808, end: 20081212

REACTIONS (3)
  - IUCD COMPLICATION [None]
  - UTERINE DISORDER [None]
  - VAGINAL HAEMORRHAGE [None]
